FAERS Safety Report 6130543-4 (Version None)
Quarter: 2009Q1

REPORT INFORMATION
  Report Type: 
  Country: None (occurrence: None)
  Receive Date: 20090323
  Receipt Date: 20090309
  Transmission Date: 20090719
  Serious: No
  Sender: FDA-Public Use
  Company Number: C-09-0054-W

PATIENT
  Age: 65 Year
  Sex: Female

DRUGS (3)
  1. LISINOPRIL [Suspect]
     Indication: HYPERTENSION
     Dosage: ONE TABLET/ DAY/ ORALLY
     Route: 048
     Dates: start: 20081102, end: 20090112
  2. MELOXICAM [Concomitant]
  3. SIMVASTATIN [Concomitant]

REACTIONS (7)
  - BLOOD PRESSURE INADEQUATELY CONTROLLED [None]
  - DISEASE PROGRESSION [None]
  - DRUG INTERACTION [None]
  - HYPERTENSION [None]
  - MALABSORPTION [None]
  - MEDICATION ERROR [None]
  - POOR QUALITY DRUG ADMINISTERED [None]
